FAERS Safety Report 7906037-X (Version None)
Quarter: 2011Q4

REPORT INFORMATION
  Report Type: 
  Country: None (occurrence: None)
  Receive Date: 20111110
  Receipt Date: 20111110
  Transmission Date: 20120403
  Serious: Yes (Other)
  Sender: FDA-Public Use
  Company Number: None

PATIENT
  Age: 51 Year
  Sex: Female
  Weight: 63.502 kg

DRUGS (1)
  1. PARAGARD T 380A [Suspect]
     Indication: DEVICE BREAKAGE
     Dates: start: 20080105, end: 20111011

REACTIONS (4)
  - DEVICE BREAKAGE [None]
  - PAIN [None]
  - IMPAIRED WORK ABILITY [None]
  - EMOTIONAL DISTRESS [None]
